FAERS Safety Report 8774340 (Version 1)
Quarter: 2012Q4

REPORT INFORMATION
  Report Type: 
  Country: US (occurrence: US)
  Receive Date: 20120907
  Receipt Date: 20120907
  Transmission Date: 20130627
  Serious: Yes (Other)
  Sender: FDA-Public Use
  Company Number: US-ELI_LILLY_AND_COMPANY-US201209000535

PATIENT
  Age: 45 Year
  Sex: Male

DRUGS (2)
  1. CIALIS [Suspect]
     Dosage: 10 mg, unknown
  2. NAPROXEN [Concomitant]

REACTIONS (3)
  - Ear haemorrhage [Unknown]
  - Tinnitus [Recovered/Resolved]
  - Intentional drug misuse [Unknown]
